FAERS Safety Report 4718852-4 (Version None)
Quarter: 2005Q3

REPORT INFORMATION
  Report Type: 
  Country: None (occurrence: None)
  Receive Date: 20050720
  Receipt Date: 20050627
  Transmission Date: 20060218
  Serious: Yes (Other)
  Sender: FDA-Public Use
  Company Number: 2005032566

PATIENT
  Age: 55 Year
  Sex: Female
  Weight: 86 kg

DRUGS (44)
  1. ATORVASTATIN CALCIUM [Suspect]
     Indication: HYPERCHOLESTEROLAEMIA
     Dates: start: 19970101
  2. STALTOR (CERIVASTATIN) [Suspect]
     Indication: HYPERCHOLESTEROLAEMIA
     Dates: start: 19970101
  3. PRAVASTATIN [Suspect]
     Indication: HYPERCHOLESTEROLAEMIA
     Dates: start: 19970101
  4. GEMFIBROZIL [Suspect]
     Indication: HYPERCHOLESTEROLAEMIA
     Dates: start: 20011103
  5. NAPROXEN [Concomitant]
  6. OMEPRAZOLE [Concomitant]
  7. CHOLESTYRAMINE [Concomitant]
  8. GALENIC/HYDROCHLOROTHIAZIDE/IRBESARTAN (HYDROCHLOROTHIAZIDE, IRBESARTA [Concomitant]
  9. CELECOXIB (CELECOXIB) [Concomitant]
  10. ROXITHROMYCIN (ROXITHROMYCIN) [Concomitant]
  11. FENOFIBRATE [Concomitant]
  12. AMLODIPINE [Concomitant]
  13. CETIRIZINE/PSEUDOEPHEDRINE (CETIRIZINE, PSEUDOEPHEDRINE) [Concomitant]
  14. DICLOFENAC SODIUM/MISOPROSTOL (DICLOFENAC SODIUM, MISOPROSTOL) [Concomitant]
  15. MEFENAMIC ACID [Concomitant]
  16. TETRAZEPAM (TETRAZEPAM) [Concomitant]
  17. IBACITABINE (IBACITABINE) [Concomitant]
  18. IRBESARTAN [Concomitant]
  19. DEXCHLORPHENIRAMINE (DEXCHLORPHENIRAMINE) [Concomitant]
  20. BETAMETHAZONE (BETAMETHASONE) [Concomitant]
  21. METONIDAZOLE (METRONIDAZOLE) [Concomitant]
  22. IPRATROPIUM BROMIDE [Concomitant]
  23. CEFTRIAXONE [Concomitant]
  24. METHYLPREDNISOLONE HEMISUCCINATE (METHYLPREDNISOLONE HEMISUCCINATE) [Concomitant]
  25. GADOTERIDOL (GADOTERIDOL) [Concomitant]
  26. TRAMADOL HCL [Concomitant]
  27. AMANTADINE HCL [Concomitant]
  28. AMBROXOL (AMBROXOL) [Concomitant]
  29. FLUNISOLIDE HEMIHYDRATE (FLUNISOLIDE HEMIHYDRATE) [Concomitant]
  30. TRIAMCINOLONE ACETONIDE [Concomitant]
  31. ESTRADIOL HEMIHYDRATE (ESTRADIOL) [Concomitant]
  32. ACETYLSALICYLATE LYSINE (ACETYLSALICYLATE LYSINE) [Concomitant]
  33. ACETYLCYSTEINE [Concomitant]
  34. BACLOFEN [Concomitant]
  35. AUBEPINE (CRATAEGUS) [Concomitant]
  36. AMITRIPTYLINE HCL [Concomitant]
  37. FUSAFUNGINE (FUSAFUNGINE) [Concomitant]
  38. HIRUDO MEDICINALIS EXTRAIT (ALL OTHER THERAPEUTIC PRODUCTS) [Concomitant]
  39. TROXERUTIN (TROXERUTIN) [Concomitant]
  40. LEVOCETIRIZINE DIHYDROCHLORIDE (LEVOCETIRIZINE DIHYDROCHLORIDE) [Concomitant]
  41. NADROPARIN CALCIUM (NADROPARIN CALCIUM) [Concomitant]
  42. NIMESULIDE (NIMESULIDE) [Concomitant]
  43. RABEPRAZOLE SODIUM [Concomitant]
  44. METFORMIN HCL [Concomitant]

REACTIONS (51)
  - ABASIA [None]
  - ABDOMINAL PAIN [None]
  - ACTIVITIES OF DAILY LIVING IMPAIRED [None]
  - ARTHRALGIA [None]
  - ARTHROPATHY [None]
  - ASTHENIA [None]
  - BACK PAIN [None]
  - BLOOD CHOLESTEROL INCREASED [None]
  - BONE PAIN [None]
  - BRADYKINESIA [None]
  - CHOLELITHIASIS [None]
  - CONDITION AGGRAVATED [None]
  - CYST [None]
  - DIARRHOEA [None]
  - DIFFICULTY IN WALKING [None]
  - DIPLEGIA [None]
  - DYSKINESIA [None]
  - DYSTONIA [None]
  - FATIGUE [None]
  - FIBROMYALGIA [None]
  - FORMICATION [None]
  - GRIP STRENGTH DECREASED [None]
  - HYPOAESTHESIA [None]
  - IMPAIRED DRIVING ABILITY [None]
  - IMPAIRED WORK ABILITY [None]
  - INSOMNIA [None]
  - JOINT STIFFNESS [None]
  - LABORATORY TEST ABNORMAL [None]
  - MOBILITY DECREASED [None]
  - MULTIPLE SCLEROSIS [None]
  - MUSCLE DISORDER [None]
  - MUSCLE SPASMS [None]
  - MUSCULAR WEAKNESS [None]
  - MUSCULOSKELETAL DISCOMFORT [None]
  - MUSCULOSKELETAL PAIN [None]
  - MUSCULOSKELETAL STIFFNESS [None]
  - MYALGIA [None]
  - MYELITIS [None]
  - NECK PAIN [None]
  - NERVOUS SYSTEM DISORDER [None]
  - OSTEOARTHRITIS [None]
  - PAIN [None]
  - PAIN IN EXTREMITY [None]
  - PERIARTHRITIS [None]
  - REFLEXES ABNORMAL [None]
  - RHABDOMYOLYSIS [None]
  - SCIATICA [None]
  - SENSATION OF HEAVINESS [None]
  - SENSORY DISTURBANCE [None]
  - SEPTOPLASTY [None]
  - SINUS POLYP [None]
